FAERS Safety Report 25615863 (Version 1)
Quarter: 2025Q3

REPORT INFORMATION
  Report Type: Spontaneous
  Country: CN (occurrence: CN)
  Receive Date: 20250729
  Receipt Date: 20250729
  Transmission Date: 20251020
  Serious: Yes (Other)
  Sender: ALEXION PHARMACEUTICALS
  Company Number: CN-ASTRAZENECA-202507CHN017541CN

PATIENT
  Age: 52 Year
  Sex: Female
  Weight: 42 kg

DRUGS (2)
  1. TAGRISSO [Suspect]
     Active Substance: OSIMERTINIB
     Indication: Lung neoplasm malignant
     Dosage: 80 MILLIGRAM, QD
     Dates: start: 20250630, end: 20250707
  2. VEBRELTINIB [Suspect]
     Active Substance: VEBRELTINIB
     Indication: Lung neoplasm malignant
     Dosage: 100 MILLIGRAM, BID
     Dates: start: 20250630, end: 20250717

REACTIONS (1)
  - Myelosuppression [Recovering/Resolving]

NARRATIVE: CASE EVENT DATE: 20250708
